FAERS Safety Report 6438896-4 (Version None)
Quarter: 2009Q4

REPORT INFORMATION
  Report Type: 
  Country: None (occurrence: None)
  Receive Date: 20091113
  Receipt Date: 20091103
  Transmission Date: 20100525
  Serious: Yes (Other)
  Sender: FDA-Public Use
  Company Number: NL-JNJFOC-20090105387

PATIENT
  Sex: Female
  Weight: 57 kg

DRUGS (5)
  1. REMICADE [Suspect]
     Indication: RHEUMATOID ARTHRITIS
     Route: 042
     Dates: start: 20010713, end: 20080917
  2. METHOTREXATE [Suspect]
     Dosage: 2.5 MG TABLET
  3. METHOTREXATE [Suspect]
     Indication: RHEUMATOID ARTHRITIS
     Dosage: 2.5 MG TABLET
  4. FOLIUMZUUR [Concomitant]
     Dosage: 2.5 MG TABLET
  5. FOLIUMZUUR [Concomitant]
     Indication: RHEUMATOID ARTHRITIS
     Dosage: 2.5 MG TABLET

REACTIONS (1)
  - HODGKIN'S DISEASE [None]
